FAERS Safety Report 8308937-8 (Version None)
Quarter: 2012Q2

REPORT INFORMATION
  Report Type: 
  Country: None (occurrence: None)
  Receive Date: 20120424
  Receipt Date: 20120224
  Transmission Date: 20120825
  Serious: No
  Sender: FDA-Public Use
  Company Number: US-B.I. PHARMACEUTICALS,INC./RIDGEFIELD-2012-BP-03609BP

PATIENT
  Age: 71 Year
  Sex: Female

DRUGS (5)
  1. PRADAXA [Suspect]
     Indication: ATRIAL FIBRILLATION
     Dosage: 300 MG
     Route: 048
     Dates: start: 20110601
  2. CARDIZEM [Concomitant]
  3. CRESTOR [Concomitant]
  4. METOPROLOL TARTRATE [Concomitant]
     Dates: start: 20110601
  5. BENICAR [Concomitant]
     Dates: start: 20110601

REACTIONS (5)
  - VOCAL CORD DISORDER [None]
  - CHOLELITHIASIS [None]
  - MUSCULOSKELETAL PAIN [None]
  - JOINT SWELLING [None]
  - DYSPHONIA [None]
